FAERS Safety Report 24314403 (Version 1)
Quarter: 2024Q3

REPORT INFORMATION
  Report Type: Spontaneous
  Country: US (occurrence: US)
  Receive Date: 20240913
  Receipt Date: 20240913
  Transmission Date: 20241017
  Serious: Yes (Hospitalization, Other)
  Sender: BRISTOL MYERS SQUIBB
  Company Number: US-BRISTOL-MYERS SQUIBB COMPANY-2024-144105

PATIENT
  Age: 79 Year
  Sex: Male

DRUGS (15)
  1. REVLIMID [Suspect]
     Active Substance: LENALIDOMIDE
     Indication: Plasma cell myeloma
     Route: 048
     Dates: start: 202402
  2. NITROGLYCERIN [Concomitant]
     Active Substance: NITROGLYCERIN
     Dosage: ER
  3. DARZALEX [Concomitant]
     Active Substance: DARATUMUMAB
     Dosage: 100MG/5ML INJ, 1 VIAL
  4. GABAPENTIN [Concomitant]
     Active Substance: GABAPENTIN
  5. ASPIRIN [Concomitant]
     Active Substance: ASPIRIN
     Dosage: ASPIRIN 81MG EC LOW DOSE TABLETS
  6. METFORMIN [Concomitant]
     Active Substance: METFORMIN HYDROCHLORIDE
  7. ATORVASTATIN [Concomitant]
     Active Substance: ATORVASTATIN
  8. CLOPIDOGREL [Concomitant]
     Active Substance: CLOPIDOGREL BISULFATE
  9. VELCADE [Concomitant]
     Active Substance: BORTEZOMIB
     Dosage: 1 VIAL
  10. VITAMIN D2 [Concomitant]
     Active Substance: ERGOCALCIFEROL
     Dosage: (ERGO) CAP RX
  11. FISH OIL [Concomitant]
     Active Substance: FISH OIL
  12. ZETIA [Concomitant]
     Active Substance: EZETIMIBE
  13. FINASTERIDE [Concomitant]
     Active Substance: FINASTERIDE
  14. VITAMIN B12 [Concomitant]
     Active Substance: CYANOCOBALAMIN
     Dosage: CR
  15. ACYCLOVIR [Concomitant]
     Active Substance: ACYCLOVIR

REACTIONS (3)
  - Dyspnoea [Unknown]
  - Thrombosis [Unknown]
  - Back disorder [Unknown]

NARRATIVE: CASE EVENT DATE: 20240801
